FAERS Safety Report 4951215-5 (Version None)
Quarter: 2006Q1

REPORT INFORMATION
  Report Type: 
  Country: None (occurrence: None)
  Receive Date: 20060313
  Receipt Date: 20060306
  Transmission Date: 20060701
  Serious: Yes (Death, Other)
  Sender: FDA-Public Use
  Company Number: 200610825BWH

PATIENT
  Age: 65 Year
  Sex: Male

DRUGS (1)
  1. NEXAVAR [Suspect]
     Indication: RENAL CELL CARCINOMA STAGE UNSPECIFIED
     Dosage: 400 MG, ONCE, ORAL
     Route: 048
     Dates: start: 20060210

REACTIONS (2)
  - ARRHYTHMIA [None]
  - MYOCARDIAL INFARCTION [None]
